FAERS Safety Report 5229288-4 (Version None)
Quarter: 2007Q1

REPORT INFORMATION
  Report Type: 
  Country: None (occurrence: None)
  Receive Date: 20070131
  Receipt Date: 20070127
  Transmission Date: 20070707
  Serious: Yes (Death, Hospitalization, Other)
  Sender: FDA-Public Use
  Company Number: 229920

PATIENT
  Age: 70 Year
  Sex: Female

DRUGS (7)
  1. RITUXAN [Suspect]
     Indication: SYSTEMIC LUPUS ERYTHEMATOSUS
     Dates: start: 20040401
  2. STEROIDS (UNK INGREDIENTS) (STEROID NOS) [Concomitant]
  3. AMBIEN [Concomitant]
  4. ADVAIR DISKUS 100/50 [Concomitant]
  5. PREVACID [Concomitant]
  6. FOSAMAX [Concomitant]
  7. TOPRAL (SULTOPRIDE) [Concomitant]

REACTIONS (6)
  - DYSPHAGIA [None]
  - GAIT DISTURBANCE [None]
  - PROGRESSIVE MULTIFOCAL LEUKOENCEPHALOPATHY [None]
  - TONGUE BITING [None]
  - VERTIGO [None]
  - VISUAL DISTURBANCE [None]
